FAERS Safety Report 13225466 (Version 1)
Quarter: 2017Q1

REPORT INFORMATION
  Report Type: Spontaneous
  Country: US (occurrence: US)
  Receive Date: 20170211
  Receipt Date: 20170211
  Transmission Date: 20170428
  Serious: No
  Sender: FDA-Public Use
  Company Number: None

PATIENT
  Age: 66 Year
  Sex: Female

DRUGS (1)
  1. STELARA [Suspect]
     Active Substance: USTEKINUMAB
     Indication: ILL-DEFINED DISORDER
     Dosage: 45MG EVERY 12 WEEKS SUBCUT
     Route: 058
     Dates: start: 20160926, end: 20170101

REACTIONS (4)
  - Fatigue [None]
  - Diarrhoea [None]
  - Gastric disorder [None]
  - Malaise [None]

NARRATIVE: CASE EVENT DATE: 20161201
